FAERS Safety Report 5591150-5 (Version None)
Quarter: 2008Q1

REPORT INFORMATION
  Report Type: 
  Country: None (occurrence: None)
  Receive Date: 20080115
  Receipt Date: 20080104
  Transmission Date: 20080703
  Serious: Yes (Death, Hospitalization, Other)
  Sender: FDA-Public Use
  Company Number: US-KINGPHARMUSA00001-K200800011

PATIENT

DRUGS (5)
  1. ALTACE [Suspect]
     Dosage: 2.5 MG, QD
     Route: 048
  2. LASIX [Suspect]
     Dosage: 80 MG, UNK
     Route: 048
  3. TENORMIN [Suspect]
     Dosage: 100 MG, UNK
     Route: 048
  4. KARDEGIC    /00002703/ [Concomitant]
  5. NOLVADEX    /00388701/ [Concomitant]

REACTIONS (12)
  - ANAEMIA [None]
  - COGNITIVE DISORDER [None]
  - DRUG INTERACTION [None]
  - FALL [None]
  - FOLATE DEFICIENCY [None]
  - GASTROINTESTINAL HAEMORRHAGE [None]
  - LOSS OF CONSCIOUSNESS [None]
  - MALAISE [None]
  - ORTHOSTATIC HYPOTENSION [None]
  - SINUS BRADYCARDIA [None]
  - THROMBOCYTOPENIA [None]
  - VITAMIN B12 DEFICIENCY [None]
